FAERS Safety Report 18189693 (Version 1)
Quarter: 2020Q3

REPORT INFORMATION
  Report Type: Spontaneous
  Country: HR (occurrence: HR)
  Receive Date: 20200824
  Receipt Date: 20200824
  Transmission Date: 20201103
  Serious: Yes (Other)
  Sender: FDA-Public Use
  Company Number: HR-FRESENIUS KABI-FK202008551

PATIENT
  Age: 8 Year
  Sex: Male

DRUGS (5)
  1. DEXAMETHASONE INJECTION (MANUFACTURER UNKNOWN) [Suspect]
     Active Substance: DEXAMETHASONE
     Indication: ACUTE LYMPHOCYTIC LEUKAEMIA
     Route: 065
  2. METHOTREXATE (MANUFACTURER UNKNOWN) [Suspect]
     Active Substance: METHOTREXATE
     Indication: ACUTE LYMPHOCYTIC LEUKAEMIA
     Route: 037
  3. DOXORUBICIN (MANUFACTURER UNKNOWN) [Suspect]
     Active Substance: DOXORUBICIN
     Indication: ACUTE LYMPHOCYTIC LEUKAEMIA
     Route: 065
  4. VINCRISTINE [Suspect]
     Active Substance: VINCRISTINE
     Indication: ACUTE LYMPHOCYTIC LEUKAEMIA
     Route: 065
  5. ASPARAGINASE [Suspect]
     Active Substance: ASPARAGINASE
     Indication: ACUTE LYMPHOCYTIC LEUKAEMIA
     Dosage: 10000 IU/M2
     Route: 065

REACTIONS (4)
  - Electrolyte imbalance [Unknown]
  - Neurotoxicity [Recovered/Resolved]
  - Febrile neutropenia [Unknown]
  - Posterior reversible encephalopathy syndrome [Recovered/Resolved]
